FAERS Safety Report 25627675 (Version 1)
Quarter: 2025Q3

REPORT INFORMATION
  Report Type: Spontaneous
  Country: US (occurrence: None)
  Receive Date: 20250730
  Receipt Date: 20250730
  Transmission Date: 20251020
  Serious: No
  Sender: FDA-CTU
  Company Number: None

PATIENT
  Age: 60 Year
  Sex: Female

DRUGS (1)
  1. VAGIFEM [Suspect]
     Active Substance: ESTRADIOL
     Indication: Atrophic vulvovaginitis
     Dosage: 10 UGM/UGM DAILY  VAGINAL?
     Route: 067
     Dates: start: 20250728, end: 20250730

REACTIONS (4)
  - Burning sensation [None]
  - Pain [None]
  - Haemorrhage [None]
  - Discharge [None]

NARRATIVE: CASE EVENT DATE: 20250730
